FAERS Safety Report 26207537 (Version 1)
Quarter: 2025Q4

REPORT INFORMATION
  Report Type: Spontaneous
  Country: US (occurrence: US)
  Receive Date: 20251229
  Receipt Date: 20251229
  Transmission Date: 20260117
  Serious: No
  Sender: DECIPHERA PHARMACEUTICALS
  Company Number: US-DECIPHERA PHARMACEUTICALS LLC-2025US001619

PATIENT
  Sex: Female

DRUGS (2)
  1. ROMVIMZA [Suspect]
     Active Substance: VIMSELTINIB
     Indication: Giant cell tumour of tendon sheath
     Dosage: 30 MILLIGRAM
  2. ROMVIMZA [Suspect]
     Active Substance: VIMSELTINIB
     Dosage: 20 MILLIGRAM (DOSE LOWERED)

REACTIONS (1)
  - Periorbital oedema [Not Recovered/Not Resolved]
